FAERS Safety Report 4870906-8 (Version None)
Quarter: 2005Q4

REPORT INFORMATION
  Report Type: 
  Country: None (occurrence: None)
  Receive Date: 20051229
  Receipt Date: 20051219
  Transmission Date: 20060501
  Serious: Yes (Life-Threatening)
  Sender: FDA-Public Use
  Company Number: 863#3#2005-00016

PATIENT
  Age: 75 Year
  Sex: Female

DRUGS (6)
  1. IDROLAX (MACROGOL) [Suspect]
     Indication: INCORRECT DOSE ADMINISTERED
     Dosage: ORAL
     Route: 048
     Dates: start: 20050901, end: 20051014
  2. FOSFOMYCIN TROMETAMOL (FOSFOMYCIN TROMETAMOL) [Suspect]
     Dosage: 3 G ORAL
     Route: 048
     Dates: start: 20051014, end: 20051014
  3. MODOPAR (VENSERAZIDE HYDROCHLORIDE, LEVODOPA) [Concomitant]
  4. MEBEVERINE (MEBEVERINE) [Concomitant]
  5. TRAMADOL HCL [Concomitant]
  6. TROXERUTINE (TROXERUTIN) [Concomitant]

REACTIONS (8)
  - ACCIDENTAL OVERDOSE [None]
  - COMA [None]
  - DIARRHOEA [None]
  - ELECTROLYTE IMBALANCE [None]
  - HYPONATRAEMIA [None]
  - LOSS OF CONSCIOUSNESS [None]
  - MALAISE [None]
  - WEIGHT DECREASED [None]
